FAERS Safety Report 9324993 (Version 1)
Quarter: 2013Q2

REPORT INFORMATION
  Report Type: Spontaneous
  Country: JP (occurrence: JP)
  Receive Date: 20130603
  Receipt Date: 20130603
  Transmission Date: 20140414
  Serious: Yes (Death)
  Sender: FDA-Public Use
  Company Number: JP-ABBOTT-13P-087-1086285-00

PATIENT
  Age: 47 Year
  Sex: Female
  Weight: 79 kg

DRUGS (2)
  1. HUMIRA [Suspect]
     Indication: PSORIASIS
     Route: 058
     Dates: start: 20111213, end: 20111213
  2. HUMIRA [Suspect]
     Dates: start: 20111227, end: 20130416

REACTIONS (2)
  - Completed suicide [Fatal]
  - Pustular psoriasis [Recovered/Resolved]
